FAERS Safety Report 4553835-9 (Version None)
Quarter: 2005Q1

REPORT INFORMATION
  Report Type: 
  Country: None (occurrence: None)
  Receive Date: 20050110
  Receipt Date: 20050110
  Transmission Date: 20050727
  Serious: Yes (Life-Threatening, Hospitalization)
  Sender: FDA-Public Use
  Company Number: None

PATIENT
  Sex: Male
  Weight: 83.9154 kg

DRUGS (1)
  1. AMIODARONE HCL [Suspect]
     Indication: ATRIAL FIBRILLATION
     Dosage: 800 MG WEEKLY ORAL
     Route: 048
     Dates: start: 19870601, end: 19930701

REACTIONS (6)
  - CARDIAC DISORDER [None]
  - CEREBRAL HAEMORRHAGE [None]
  - EYE DISORDER [None]
  - HYPERTHYROIDISM [None]
  - LUNG DISORDER [None]
  - PULMONARY TOXICITY [None]
